FAERS Safety Report 13083372 (Version 1)
Quarter: 2017Q1

REPORT INFORMATION
  Report Type: Spontaneous
  Country: DE (occurrence: DE)
  Receive Date: 20170104
  Receipt Date: 20170104
  Transmission Date: 20170428
  Serious: Yes (Congenital Anomaly)
  Sender: FDA-Public Use
  Company Number: DE-SUN PHARMACEUTICAL INDUSTRIES LTD-2016RR-130239

PATIENT
  Sex: Male
  Weight: 2.9 kg

DRUGS (2)
  1. VITAVERLAN [Concomitant]
     Indication: PROPHYLAXIS OF NEURAL TUBE DEFECT
     Dosage: 0.4 MG, DAILY, 4.1-4.6 GESTATIONAL WEEK
     Route: 064
     Dates: start: 20151121, end: 20151126
  2. VENLAFAXINE [Suspect]
     Active Substance: VENLAFAXINE HYDROCHLORIDE
     Indication: DEPRESSION
     Dosage: 150 MG, DAILY, 0-38.2 GESTATIONAL WEEK
     Route: 064
     Dates: start: 20151023, end: 20160717

REACTIONS (3)
  - Congenital ureterocele [Not Recovered/Not Resolved]
  - Ureteric stenosis [Not Recovered/Not Resolved]
  - Congenital megaureter [Not Recovered/Not Resolved]
